FAERS Safety Report 17031168 (Version 2)
Quarter: 2020Q2

REPORT INFORMATION
  Report Type: Report from Study
  Country: US (occurrence: US)
  Receive Date: 20191114
  Receipt Date: 20200423
  Transmission Date: 20200713
  Serious: Yes (Hospitalization)
  Sender: FDA-Public Use
  Company Number: US-GLAXOSMITHKLINE-2019-TSO02991-US

PATIENT
  Age: 51 Year
  Sex: Female
  Weight: 91 kg

DRUGS (2)
  1. NIRAPARIB [Suspect]
     Active Substance: NIRAPARIB
     Indication: OVARIAN CANCER
     Dosage: 200 MG, QPM WITH FOOD
     Route: 048
     Dates: start: 20190821
  2. NIRAPARIB [Suspect]
     Active Substance: NIRAPARIB
     Dosage: 200 MG, QD
     Route: 048

REACTIONS (14)
  - Decreased appetite [Unknown]
  - Dizziness [Unknown]
  - Fatigue [Not Recovered/Not Resolved]
  - Hospitalisation [Unknown]
  - Pruritus [Unknown]
  - Neoplasm [Unknown]
  - Vomiting [Unknown]
  - Influenza [Unknown]
  - Pain [Unknown]
  - Pain in extremity [Unknown]
  - Abdominal pain [Unknown]
  - Dyspepsia [Unknown]
  - Nausea [Not Recovered/Not Resolved]
  - Paraesthesia oral [Unknown]

NARRATIVE: CASE EVENT DATE: 201908
